FAERS Safety Report 9874740 (Version 1)
Quarter: 2014Q1

REPORT INFORMATION
  Report Type: Report from Study
  Country: JP (occurrence: JP)
  Receive Date: 20140206
  Receipt Date: 20140206
  Transmission Date: 20141002
  Serious: Yes (Other)
  Sender: FDA-Public Use
  Company Number: PHHY2014JP012942

PATIENT
  Age: 44 Year
  Sex: Female

DRUGS (8)
  1. FTY 720 [Suspect]
     Dosage: 0.5 MG, QD
     Route: 048
     Dates: start: 20120402
  2. MYSLEE [Concomitant]
     Indication: INSOMNIA
     Dosage: 10 MG, UNK
     Route: 048
  3. MYONAL [Concomitant]
     Indication: MUSCULOSKELETAL STIFFNESS
     Dosage: 50 MG, UNK
     Route: 048
     Dates: end: 20121022
  4. LENDORMIN [Concomitant]
     Indication: INSOMNIA
     Dosage: 0.25 MG, UNK
     Route: 048
     Dates: end: 20130218
  5. TERNELIN [Concomitant]
     Indication: MUSCULOSKELETAL STIFFNESS
     Dosage: 1 MG, UNK
     Route: 048
     Dates: start: 20121023
  6. HALCION [Concomitant]
     Indication: INSOMNIA
     Dosage: 0.125 MG, UNK
     Route: 048
     Dates: start: 20121023, end: 20121106
  7. DEPAS [Concomitant]
     Indication: INSOMNIA
     Dosage: 1 MG, UNK
     Route: 048
     Dates: start: 20121106, end: 20121204
  8. GASPORT [Concomitant]
     Indication: EROSIVE DUODENITIS
     Dosage: 40 MG, UNK
     Route: 048
     Dates: start: 20121029

REACTIONS (4)
  - Hepatic function abnormal [Recovering/Resolving]
  - Liver function test abnormal [Unknown]
  - Gamma-glutamyltransferase increased [Unknown]
  - White blood cell count decreased [Unknown]
